FAERS Safety Report 22588046 (Version 3)
Quarter: 2023Q4

REPORT INFORMATION
  Report Type: Spontaneous
  Country: US (occurrence: US)
  Receive Date: 20230612
  Receipt Date: 20231025
  Transmission Date: 20240110
  Serious: Yes (Hospitalization, Other)
  Sender: FDA-Public Use
  Company Number: US-BRISTOL-MYERS SQUIBB COMPANY-2023-081139

PATIENT
  Age: 47 Year
  Sex: Female

DRUGS (2)
  1. REVLIMID [Suspect]
     Active Substance: LENALIDOMIDE
     Indication: Plasma cell myeloma
     Route: 048
     Dates: start: 202305
  2. REVLIMID [Suspect]
     Active Substance: LENALIDOMIDE
     Dosage: ONCE DAILY FOR 21 DAYS ON AND 7 DAYS OFF.
     Route: 048
     Dates: start: 202305

REACTIONS (12)
  - Vision blurred [Unknown]
  - Pyrexia [Unknown]
  - Confusional state [Unknown]
  - Dehydration [Unknown]
  - Sepsis [Unknown]
  - Skin laceration [Unknown]
  - White blood cell count decreased [Unknown]
  - Vomiting [Unknown]
  - Oropharyngeal pain [Unknown]
  - Urticaria [Unknown]
  - Dysphagia [Unknown]
  - Febrile neutropenia [Unknown]

NARRATIVE: CASE EVENT DATE: 20230501
